FAERS Safety Report 21875488 (Version 1)
Quarter: 2023Q1

REPORT INFORMATION
  Report Type: Report from Study
  Country: US (occurrence: US)
  Receive Date: 20230118
  Receipt Date: 20230118
  Transmission Date: 20230418
  Serious: No
  Sender: FDA-Public Use
  Company Number: US-ABBVIE-4240238

PATIENT
  Sex: Female

DRUGS (1)
  1. SKYRIZI [Suspect]
     Active Substance: RISANKIZUMAB-RZAA
     Indication: Psoriasis
     Dosage: 150 MILLIGRAM/MILLILITERS
     Route: 058
     Dates: start: 20211203

REACTIONS (4)
  - Illness [Unknown]
  - Spinal pain [Unknown]
  - Spinal deformity [Unknown]
  - Back pain [Not Recovered/Not Resolved]
